FAERS Safety Report 6970157-7 (Version None)
Quarter: 2010Q3

REPORT INFORMATION
  Report Type: 
  Country: None (occurrence: None)
  Receive Date: 20100823
  Receipt Date: 20100624
  Transmission Date: 20110219
  Serious: Yes (Other)
  Sender: FDA-Public Use
  Company Number: 014542

PATIENT
  Age: 40 Year
  Sex: Female
  Weight: 70 kg

DRUGS (4)
  1. CIMZIA [Suspect]
     Indication: CROHN'S DISEASE
     Dosage: 400 MG 1X/MONTH SUBCUTANEOUS
     Route: 058
     Dates: start: 20090201
  2. CIMZIA [Suspect]
     Dosage: 400 MG 1X/MONTH INTRAMUSCULAR
     Route: 030
     Dates: start: 20100614, end: 20100614
  3. PENTASA [Concomitant]
  4. LEXAPRO [Concomitant]

REACTIONS (6)
  - ANXIETY [None]
  - CONVULSION [None]
  - DIZZINESS [None]
  - INCORRECT ROUTE OF DRUG ADMINISTRATION [None]
  - PARAESTHESIA [None]
  - WHITE BLOOD CELL COUNT INCREASED [None]
